FAERS Safety Report 6034191-6 (Version None)
Quarter: 2009Q1

REPORT INFORMATION
  Report Type: 
  Country: None (occurrence: None)
  Receive Date: 20090112
  Receipt Date: 20081209
  Transmission Date: 20090719
  Serious: Yes (Hospitalization, Other)
  Sender: FDA-Public Use
  Company Number: US-AMGEN-QUU319456

PATIENT
  Sex: Female
  Weight: 76.7 kg

DRUGS (14)
  1. ENBREL [Suspect]
     Indication: RHEUMATOID ARTHRITIS
     Route: 058
     Dates: start: 20010607
  2. SULFASALAZINE [Concomitant]
     Route: 048
  3. PLAVIX [Concomitant]
  4. PREDNISONE TAB [Concomitant]
  5. LABETALOL [Concomitant]
  6. LOSARTAN [Concomitant]
  7. HYDROCHLOROTHIAZIDE [Concomitant]
  8. METFORMIN [Concomitant]
  9. LIPITOR [Concomitant]
  10. ALDACTAZIDE [Concomitant]
  11. MONOPRIL [Concomitant]
  12. NEURONTIN [Concomitant]
  13. PRAVACHOL [Concomitant]
  14. FOSAMAX [Concomitant]

REACTIONS (15)
  - ARTERIAL THROMBOSIS LIMB [None]
  - CATHETER SITE HAEMATOMA [None]
  - CORONARY ARTERY DISEASE [None]
  - DIABETES MELLITUS [None]
  - HYPERLIPIDAEMIA [None]
  - HYPERTENSION [None]
  - LYMPHOCYTOSIS [None]
  - NASOPHARYNGITIS [None]
  - NEUTROPENIA [None]
  - OEDEMA PERIPHERAL [None]
  - OSTEOARTHRITIS [None]
  - PAIN IN EXTREMITY [None]
  - THROMBOCYTOPENIA [None]
  - TOOTH ABSCESS [None]
  - URINARY TRACT INFECTION [None]
